FAERS Safety Report 25110149 (Version 1)
Quarter: 2025Q1

REPORT INFORMATION
  Report Type: Spontaneous
  Country: US (occurrence: US)
  Receive Date: 20250324
  Receipt Date: 20250324
  Transmission Date: 20250409
  Serious: No
  Sender: UROGEN PHARMA
  Company Number: US-UROGEN PHARMA LTD.-2025-UGN-000009

PATIENT

DRUGS (6)
  1. JELMYTO [Suspect]
     Active Substance: MITOMYCIN
     Indication: Product used for unknown indication
     Dosage: UNK, ONCE A WEEK,(ANTEGRADE INSTILLATION)
     Dates: start: 20241029, end: 20241029
  2. JELMYTO [Suspect]
     Active Substance: MITOMYCIN
     Dosage: UNK, ONCE A WEEK,(ANTEGRADE INSTILLATION)
     Dates: start: 2024, end: 2024
  3. JELMYTO [Suspect]
     Active Substance: MITOMYCIN
     Dosage: UNK, ONCE A WEEK,(ANTEGRADE INSTILLATION)
     Dates: start: 2024, end: 2024
  4. JELMYTO [Suspect]
     Active Substance: MITOMYCIN
     Dosage: UNK, ONCE A WEEK,(ANTEGRADE INSTILLATION)
     Dates: start: 2024, end: 2024
  5. JELMYTO [Suspect]
     Active Substance: MITOMYCIN
     Dosage: UNK, ONCE A WEEK,(ANTEGRADE INSTILLATION)
     Dates: start: 2024, end: 2024
  6. JELMYTO [Suspect]
     Active Substance: MITOMYCIN
     Dates: start: 2024, end: 2024

REACTIONS (3)
  - Blood creatine increased [Not Recovered/Not Resolved]
  - Liver disorder [Not Recovered/Not Resolved]
  - Ureteric dilatation [Unknown]

NARRATIVE: CASE EVENT DATE: 20250101
